FAERS Safety Report 8832076 (Version 1)
Quarter: 2012Q4

REPORT INFORMATION
  Report Type: 
  Country: US (occurrence: US)
  Receive Date: 20121009
  Receipt Date: 20121009
  Transmission Date: 20130627
  Serious: Yes (Hospitalization)
  Sender: FDA-Public Use
  Company Number: US-B.I. PHARMACEUTICALS,INC./RIDGEFIELD-2012-BP-24263BP

PATIENT
  Age: 65 Year
  Sex: Female

DRUGS (24)
  1. MIRAPEX [Suspect]
     Dosage: 0.25 mg
  2. HUMIRA [Suspect]
     Indication: RHEUMATOID ARTHRITIS
     Dates: start: 20120601
  3. PERCOCET [Concomitant]
     Indication: PAIN
  4. ABILIFY [Concomitant]
     Dosage: 20 mg
  5. REMERON [Concomitant]
     Dosage: 45 mg
  6. DESYREL [Concomitant]
     Dosage: 200 mg
  7. EFFEXOR [Concomitant]
     Dosage: 300 mg
  8. ACCOLATE [Concomitant]
     Dosage: 40 mg
  9. PEPCID [Concomitant]
     Dosage: 40 mg
  10. JANUVIA [Concomitant]
     Dosage: 20 mg
  11. PREMARIN [Concomitant]
     Dosage: 0.45 mg
  12. ATIVAN [Concomitant]
     Dosage: 3 mg
  13. CLARITIN [Concomitant]
     Dosage: 10 mg
  14. ATARAX [Concomitant]
     Dosage: 50 mg
  15. AMBIEN [Concomitant]
     Dosage: 10 mg
  16. WARFARIN [Concomitant]
     Dosage: 7.5 mg
  17. ZOCOR [Concomitant]
     Dosage: 80 mg
  18. ENDOCET [Concomitant]
     Dosage: 1.875 mg
  19. OXYCONTIN [Concomitant]
     Dosage: 20 mg
  20. TRAZODONE [Concomitant]
     Dosage: 300 mg
  21. MAXIMUM D 3 [Concomitant]
  22. DEPLIN [Concomitant]
     Dosage: 7.5 mg
  23. FOLIC ACID [Concomitant]
     Dosage: 1 mg
  24. METHOTREXATE SODIUM [Concomitant]
     Dosage: 1.0714 mg

REACTIONS (1)
  - Dyspnoea [Unknown]
